FAERS Safety Report 8213416-2 (Version None)
Quarter: 2012Q1

REPORT INFORMATION
  Report Type: 
  Country: None (occurrence: None)
  Receive Date: 20120315
  Receipt Date: 20120302
  Transmission Date: 20120608
  Serious: Yes (Hospitalization)
  Sender: FDA-Public Use
  Company Number: US-ROCHE-1046201

PATIENT

DRUGS (2)
  1. ZETIA [Suspect]
     Indication: BLOOD CHOLESTEROL
  2. MYCOPHENOLATE MOFETIL (CELLCEPT) [Suspect]
     Indication: PRODUCT USED FOR UNKNOWN INDICATION

REACTIONS (2)
  - SWELLING [None]
  - MOVEMENT DISORDER [None]
